FAERS Safety Report 6043407-1 (Version None)
Quarter: 2009Q1

REPORT INFORMATION
  Report Type: 
  Country: None (occurrence: None)
  Receive Date: 20090115
  Receipt Date: 20090106
  Transmission Date: 20090719
  Serious: Yes (Hospitalization)
  Sender: FDA-Public Use
  Company Number: 232654K08USA

PATIENT
  Age: 50 Year
  Sex: Male
  Weight: 73 kg

DRUGS (5)
  1. REBIF [Suspect]
     Indication: MULTIPLE SCLEROSIS
     Dosage: 44 MCG, 3 IN 1 WEEKS, SUBCUTANEOUS
     Route: 058
     Dates: start: 20050902
  2. LYRICA [Concomitant]
  3. FOSAMAX [Concomitant]
  4. DILANTIN (PHENYTOIN /00017401/) [Concomitant]
  5. PROVIGIL [Concomitant]

REACTIONS (10)
  - ABSCESS [None]
  - INJECTION SITE INFECTION [None]
  - INJECTION SITE SCAB [None]
  - INTERVERTEBRAL DISC DISORDER [None]
  - INTERVERTEBRAL DISCITIS [None]
  - PAIN [None]
  - PSEUDOMENINGOCELE [None]
  - SPINAL COMPRESSION FRACTURE [None]
  - STAPHYLOCOCCAL OSTEOMYELITIS [None]
  - WEIGHT DECREASED [None]
